FAERS Safety Report 6750094-3 (Version None)
Quarter: 2010Q2

REPORT INFORMATION
  Report Type: 
  Country: None (occurrence: None)
  Receive Date: 20100601
  Receipt Date: 20100519
  Transmission Date: 20101027
  Serious: Yes (Hospitalization, Other)
  Sender: FDA-Public Use
  Company Number: PHHY2010MX20055

PATIENT
  Sex: Female

DRUGS (4)
  1. DIOVAN [Suspect]
     Indication: HYPERTENSION
     Dosage: 1 DF, QD (320 MG)
     Route: 048
     Dates: start: 20080801
  2. SELOPRES [Concomitant]
     Dosage: UNK
     Dates: start: 20070101
  3. METFORMIN HCL [Concomitant]
     Dosage: UNK
     Dates: start: 19930101
  4. INSULIN [Concomitant]
     Dosage: UNK
     Dates: start: 20090101

REACTIONS (2)
  - HODGKIN'S DISEASE [None]
  - TUMOUR EXCISION [None]
